FAERS Safety Report 5382052-8 (Version None)
Quarter: 2007Q3

REPORT INFORMATION
  Report Type: 
  Country: None (occurrence: None)
  Receive Date: 20070705
  Receipt Date: 20070628
  Transmission Date: 20080115
  Serious: Yes (Other)
  Sender: FDA-Public Use
  Company Number: 163-21880-07061663

PATIENT
  Age: 54 Year
  Sex: Male

DRUGS (12)
  1. REVLIMID [Suspect]
     Indication: MULTIPLE MYELOMA
     Dosage: X21 DAYS/28 DAYS, DAILY, ORAL
     Route: 048
     Dates: start: 20060201, end: 20060401
  2. REGLAN (METOCLOPAMIDE) [Concomitant]
  3. ACYCLOVIR [Concomitant]
  4. FENTANYL [Concomitant]
  5. VFEND [Concomitant]
  6. NOVOLIN N [Concomitant]
  7. NEULASTA [Concomitant]
  8. TACROLIMIS (TACROLIMUS) [Concomitant]
  9. SEPTRA DS [Concomitant]
  10. PENICILLIN [Concomitant]
  11. AMBIEN [Concomitant]
  12. PROTONIX [Concomitant]

REACTIONS (3)
  - DRUG EFFECT DECREASED [None]
  - LIVER ABSCESS [None]
  - NEUTROPENIA [None]
